FAERS Safety Report 18702515 (Version 1)
Quarter: 2021Q1

REPORT INFORMATION
  Report Type: Other
  Country: US (occurrence: US)
  Receive Date: 20210105
  Receipt Date: 20210105
  Transmission Date: 20210419
  Serious: Yes (Other)
  Sender: FDA-Public Use
  Company Number: US-ROCHE-2743807

PATIENT
  Sex: Female

DRUGS (1)
  1. XELODA [Suspect]
     Active Substance: CAPECITABINE
     Indication: BREAST CANCER METASTATIC
     Dosage: TAKE 4 TABLETS BY MOUTH EVERY MORNING AND 3 TABLETS BY MOUTH EVERY EVENING FOR 2 WEEKS ON THEN 1 WEE
     Route: 048

REACTIONS (1)
  - Type 2 diabetes mellitus [Unknown]
